FAERS Safety Report 20509074 (Version 2)
Quarter: 2022Q1

REPORT INFORMATION
  Report Type: Spontaneous
  Country: US (occurrence: US)
  Receive Date: 20220223
  Receipt Date: 20220228
  Transmission Date: 20220423
  Serious: Yes (Other)
  Sender: FDA-Public Use
  Company Number: US-sptaiwan-2022SUN000590

PATIENT
  Age: 23 Year
  Sex: Female

DRUGS (2)
  1. LATUDA [Suspect]
     Active Substance: LURASIDONE HYDROCHLORIDE
     Indication: Bipolar disorder
     Dosage: 20 MG
     Route: 048
  2. LATUDA [Suspect]
     Active Substance: LURASIDONE HYDROCHLORIDE
     Dosage: 30 MG (SPLITTING 20 MG IN HALF)
     Route: 048

REACTIONS (5)
  - Suicidal ideation [Unknown]
  - Tardive dyskinesia [Unknown]
  - Drooling [Unknown]
  - Wrong technique in product usage process [Unknown]
  - Off label use [Unknown]
